FAERS Safety Report 7951475-2 (Version None)
Quarter: 2011Q4

REPORT INFORMATION
  Report Type: 
  Country: None (occurrence: None)
  Receive Date: 20111201
  Receipt Date: 20111124
  Transmission Date: 20120403
  Serious: Yes (Other)
  Sender: FDA-Public Use
  Company Number: CN-JNJFOC-20111107904

PATIENT
  Age: 27 Year
  Sex: Female

DRUGS (2)
  1. RISPERDAL [Suspect]
     Indication: SCHIZOPHRENIA
     Route: 048
     Dates: start: 20080801, end: 20110601
  2. RISPERDAL [Suspect]
     Route: 048
     Dates: start: 20110601

REACTIONS (4)
  - BREAST HYPERPLASIA [None]
  - MENSTRUAL DISORDER [None]
  - BLOOD CHOLESTEROL INCREASED [None]
  - THYROID NEOPLASM [None]
